FAERS Safety Report 8499390-2 (Version None)
Quarter: 2012Q3

REPORT INFORMATION
  Report Type: 
  Country: None (occurrence: None)
  Receive Date: 20120710
  Receipt Date: 20120629
  Transmission Date: 20120928
  Serious: Yes (Life-Threatening, Hospitalization)
  Sender: FDA-Public Use
  Company Number: NL-SANOFI-AVENTIS-2011SA066529

PATIENT
  Age: 27 Year
  Sex: Female

DRUGS (7)
  1. DESMOPRESSIN ACETATE [Suspect]
     Route: 048
  2. METRONIDAZOLE [Concomitant]
     Route: 048
  3. DESMOPRESSIN ACETATE [Suspect]
     Route: 065
  4. TOPIRAMATE [Concomitant]
  5. ARIPIPRAZOLE [Concomitant]
  6. CITALOPRAM HYDROBROMIDE [Concomitant]
  7. ALPRAZOLAM [Concomitant]

REACTIONS (13)
  - INTESTINAL ISCHAEMIA [None]
  - GASTROINTESTINAL SOUNDS ABNORMAL [None]
  - ARTERIAL THROMBOSIS [None]
  - DIARRHOEA [None]
  - HYPONATRAEMIA [None]
  - OVERDOSE [None]
  - PROTEIN S DECREASED [None]
  - ANTITHROMBIN III DECREASED [None]
  - HEPATIC NECROSIS [None]
  - ABDOMINAL PAIN [None]
  - PROTEIN C DECREASED [None]
  - GALLBLADDER DISORDER [None]
  - SPLENIC NECROSIS [None]
